FAERS Safety Report 9636017 (Version 1)
Quarter: 2013Q4

REPORT INFORMATION
  Report Type: Spontaneous
  Country: US (occurrence: US)
  Receive Date: 20131021
  Receipt Date: 20131021
  Transmission Date: 20140711
  Serious: Yes (Hospitalization)
  Sender: FDA-Public Use
  Company Number: US-PFIZER INC-2013296974

PATIENT
  Age: 61 Year
  Sex: Male
  Weight: 87.53 kg

DRUGS (3)
  1. METOPROLOL TARTRATE [Suspect]
     Dosage: 50 MG, DAILY
     Dates: end: 201310
  2. REVATIO [Suspect]
     Indication: PULMONARY HYPERTENSION
     Dosage: 20 MG, THREE TIMES A DAY
     Dates: start: 201306, end: 201310
  3. ASPIRIN [Concomitant]
     Dosage: 81 MG, DAILY

REACTIONS (2)
  - Lung disorder [Unknown]
  - Intentional drug misuse [Unknown]
